FAERS Safety Report 6014554-5 (Version None)
Quarter: 2008Q4

REPORT INFORMATION
  Report Type: 
  Country: None (occurrence: None)
  Receive Date: 20081219
  Receipt Date: 20080818
  Transmission Date: 20090506
  Serious: No
  Sender: FDA-Public Use
  Company Number: A0743077A

PATIENT
  Age: 77 Year
  Sex: Male

DRUGS (23)
  1. AVODART [Suspect]
     Indication: BENIGN PROSTATIC HYPERPLASIA
     Dosage: 1CAP PER DAY
     Route: 048
     Dates: start: 20070101
  2. JANUVIA [Concomitant]
  3. PREDNISONE TAB [Concomitant]
  4. POTASSIUM CHLORIDE [Concomitant]
  5. DIOVAN [Concomitant]
  6. TEKTURNA [Concomitant]
  7. BENZONATATE [Concomitant]
  8. LEVOTHYROXINE SODIUM [Concomitant]
  9. GUAIFENESIN [Concomitant]
  10. ALLOPURINOL [Concomitant]
  11. TEMAZEPAM [Concomitant]
  12. PROMETHAZINE [Concomitant]
  13. ASPIRIN [Concomitant]
  14. FUROSEMIDE [Concomitant]
  15. ALPRAZOLAM [Concomitant]
  16. COLCHICINE [Concomitant]
  17. ALBUTEROL SULFATE [Concomitant]
  18. IPRATROPIUM BROMIDE [Concomitant]
  19. SPIRIVA [Concomitant]
  20. PANTOPRAZOLE SODIUM [Concomitant]
  21. TYLENOL (CAPLET) [Concomitant]
  22. TRIAMCINOLONE [Concomitant]
  23. AMOXICILLIN [Concomitant]

REACTIONS (1)
  - ARTHRALGIA [None]
